FAERS Safety Report 7601561-1 (Version None)
Quarter: 2011Q3

REPORT INFORMATION
  Report Type: 
  Country: None (occurrence: None)
  Receive Date: 20110711
  Receipt Date: 20110629
  Transmission Date: 20111222
  Serious: Yes (Other)
  Sender: FDA-Public Use
  Company Number: PHHY2011BR36697

PATIENT
  Sex: Female

DRUGS (5)
  1. PRECOR [Concomitant]
     Dosage: 10 MG, UNK
  2. EXELON [Suspect]
     Indication: MEMORY IMPAIRMENT
     Dosage: 9MG/5CM2, ONE PATCH A DAY
     Dates: start: 20110318
  3. METFORMIN HCL [Concomitant]
     Dosage: 1 DF, BID
  4. ASPIRIN [Concomitant]
     Dosage: 1 DF, UNK
  5. CIPROFIBRATE [Concomitant]

REACTIONS (6)
  - APPLICATION SITE IRRITATION [None]
  - FLATULENCE [None]
  - DIARRHOEA HAEMORRHAGIC [None]
  - ABDOMINAL PAIN [None]
  - APPLICATION SITE PAIN [None]
  - APPLICATION SITE ERYTHEMA [None]
